FAERS Safety Report 24408231 (Version 1)
Quarter: 2024Q4

REPORT INFORMATION
  Report Type: Spontaneous
  Country: US (occurrence: None)
  Receive Date: 20241007
  Receipt Date: 20241007
  Transmission Date: 20250114
  Serious: Yes (Other)
  Sender: Public
  Company Number: None

PATIENT
  Age: 54 Year
  Sex: Female

DRUGS (1)
  1. FINGOLIMOD [Suspect]
     Active Substance: FINGOLIMOD
     Dates: start: 20240508, end: 20240821

REACTIONS (3)
  - Cataract [None]
  - Visual impairment [None]
  - Disease progression [None]

NARRATIVE: CASE EVENT DATE: 20241007
